FAERS Safety Report 9439112 (Version 3)
Quarter: 2013Q3

REPORT INFORMATION
  Report Type: Report from Study
  Country: US (occurrence: US)
  Receive Date: 20130802
  Receipt Date: 20130904
  Transmission Date: 20140515
  Serious: Yes (Hospitalization, Other)
  Sender: FDA-Public Use
  Company Number: US-ABBOTT-13P-163-1125565-00

PATIENT
  Age: 69 Year
  Sex: Female

DRUGS (9)
  1. HUMIRA [Suspect]
     Indication: RHEUMATOID ARTHRITIS
  2. HUMIRA [Suspect]
  3. HUMIRA [Suspect]
  4. METHOTREXATE [Concomitant]
     Indication: PRODUCT USED FOR UNKNOWN INDICATION
     Route: 050
  5. FOLIC ACID [Concomitant]
     Indication: PRODUCT USED FOR UNKNOWN INDICATION
  6. NEXIUM [Concomitant]
     Indication: GASTROOESOPHAGEAL REFLUX DISEASE
     Dosage: DAILY
  7. XANAX [Concomitant]
     Indication: ANXIETY
     Dosage: AT BEDTIME
  8. XANAX [Concomitant]
     Indication: INSOMNIA
  9. ZOLOFT [Concomitant]
     Indication: DEPRESSION

REACTIONS (4)
  - Abdominal hernia [Unknown]
  - Arthralgia [Recovered/Resolved]
  - Injection site pain [Unknown]
  - Juvenile idiopathic arthritis [Recovered/Resolved]
